FAERS Safety Report 14597685 (Version 1)
Quarter: 2018Q1

REPORT INFORMATION
  Report Type: Spontaneous
  Country: US (occurrence: US)
  Receive Date: 20180305
  Receipt Date: 20180305
  Transmission Date: 20180509
  Serious: Yes (Life-Threatening, Other)
  Sender: FDA-Public Use
  Company Number: US-FRESENIUS KABI-FK201802532

PATIENT
  Age: 36 Year
  Sex: Female

DRUGS (1)
  1. MEPIVACAINE (MANUFACTURER UNKNOWN) [Suspect]
     Active Substance: MEPIVACAINE HYDROCHLORIDE
     Indication: SKIN TEST
     Route: 065

REACTIONS (1)
  - Vocal cord dysfunction [Unknown]
